FAERS Safety Report 10246781 (Version 1)
Quarter: 2014Q2

REPORT INFORMATION
  Report Type: Spontaneous
  Country: BR (occurrence: BR)
  Receive Date: 20140619
  Receipt Date: 20140619
  Transmission Date: 20141212
  Serious: Yes (Other)
  Sender: FDA-Public Use
  Company Number: PHHY2014BR076109

PATIENT
  Sex: Female

DRUGS (1)
  1. RITALINA [Suspect]
     Dosage: 1 DF, DAILY

REACTIONS (1)
  - Trisomy 21 [Unknown]
